FAERS Safety Report 6768850-4 (Version None)
Quarter: 2010Q2

REPORT INFORMATION
  Report Type: 
  Country: None (occurrence: None)
  Receive Date: 20100611
  Receipt Date: 20100526
  Transmission Date: 20101027
  Serious: Yes (Hospitalization, Other)
  Sender: FDA-Public Use
  Company Number: MCN 014622/AE 2010-088

PATIENT
  Age: 42 Year
  Sex: Female

DRUGS (10)
  1. PRIALT [Suspect]
     Indication: POST LAMINECTOMY SYNDROME
     Dosage: 1.2 MG - 9 MCG, DAILY
     Dates: start: 20090629
  2. ... [Concomitant]
  3. HYDROMORPHONE HCL [Concomitant]
  4. CYMBALTA [Concomitant]
  5. LYRICA [Concomitant]
  6. KATADOLON [Concomitant]
  7. ARCOXIA [Concomitant]
  8. ORAMPRPH [Concomitant]
  9. ATOSIL [Concomitant]
  10. MORPHIN [Concomitant]

REACTIONS (2)
  - APHASIA [None]
  - THINKING ABNORMAL [None]
